FAERS Safety Report 9507267 (Version 1)
Quarter: 2013Q1

REPORT INFORMATION
  Report Type: Spontaneous
  Country: US (occurrence: None)
  Receive Date: 20130305
  Receipt Date: 20130305
  Transmission Date: 20140127
  Serious: Yes (Hospitalization)
  Sender: FDA-Public Use
  Company Number: 163-21880-12050068

PATIENT
  Age: 68 Year
  Sex: Female
  Weight: 138.8 kg

DRUGS (11)
  1. REVLIMID (LENALIDOMIDE) (CAPSULES) [Suspect]
     Indication: PLASMA CELL MYELOMA
     Dosage: DAILY 21 DAYS, THEN 7 DAYS OFF
     Route: 048
     Dates: start: 20120113
  2. ALLEGRA [Concomitant]
  3. ASPIRIN (ACETYLSALICYLIC ACID) [Concomitant]
  4. ATIVAN (LORAZEPAM) [Concomitant]
  5. CLONAZEPAM (CLONAZEPAM) [Concomitant]
  6. GLIPIZIDE (GLIPIZIDE) [Concomitant]
  7. LASIX (FUROSEMIDE) [Concomitant]
  8. NEXIUM [Concomitant]
  9. PHENERGAN (PROMETHAZINE HYDROCHLORIDE) [Concomitant]
  10. TYZEKA (TELBIVUDINE) [Concomitant]
  11. OXYGEN (OXYGEN) [Concomitant]

REACTIONS (4)
  - Dehydration [None]
  - Blood potassium decreased [None]
  - Blood magnesium decreased [None]
  - Nasopharyngitis [None]
